FAERS Safety Report 5908056-1 (Version None)
Quarter: 2008Q4

REPORT INFORMATION
  Report Type: 
  Country: None (occurrence: None)
  Receive Date: 20081003
  Receipt Date: 20080922
  Transmission Date: 20090506
  Serious: Yes (Other)
  Sender: FDA-Public Use
  Company Number: US-PFIZER INC-2008079691

PATIENT
  Sex: Female

DRUGS (6)
  1. GEODON [Suspect]
     Indication: BIPOLAR DISORDER
  2. EFFEXOR [Concomitant]
  3. KLONOPIN [Concomitant]
  4. COGENTIN [Concomitant]
  5. LEVOXYL [Concomitant]
  6. ALL OTHER THERAPEUTIC PRODUCTS [Concomitant]
     Indication: HYPOTHYROIDISM

REACTIONS (2)
  - EYELID PTOSIS [None]
  - PARKINSONISM [None]
